FAERS Safety Report 5452934-7 (Version None)
Quarter: 2007Q3

REPORT INFORMATION
  Report Type: 
  Country: None (occurrence: None)
  Receive Date: 20070914
  Receipt Date: 20070906
  Transmission Date: 20080115
  Serious: Yes (Hospitalization, Other)
  Sender: FDA-Public Use
  Company Number: US-ELI_LILLY_AND_COMPANY-US200709001090

PATIENT
  Age: 77 Year
  Sex: Female

DRUGS (6)
  1. HUMALOG MIX 50/50 [Suspect]
     Dosage: 3 U, DAILY (1/D)
  2. HUMULIN N [Suspect]
     Dosage: UNK, UNK
  3. HUMALOG [Suspect]
     Dosage: UNK, UNK
  4. HUMALOG MIX 50/50 [Suspect]
     Indication: DIABETES MELLITUS
     Dosage: 3 U, DAILY (1/D)
  5. HUMALOG [Suspect]
  6. HUMULIN N [Suspect]

REACTIONS (3)
  - EYE HAEMORRHAGE [None]
  - FALL [None]
  - VISUAL ACUITY REDUCED [None]
